FAERS Safety Report 9258143 (Version 1)
Quarter: 2013Q2

REPORT INFORMATION
  Report Type: Spontaneous
  Country: US (occurrence: US)
  Receive Date: 20130426
  Receipt Date: 20130426
  Transmission Date: 20140414
  Serious: Yes (Life-Threatening, Other)
  Sender: FDA-Public Use
  Company Number: US-PURDUE-USA-2013-0101420

PATIENT
  Age: 55 Year
  Sex: Female
  Weight: 78 kg

DRUGS (7)
  1. DILAUDID INJECTION [Suspect]
     Indication: ANAESTHESIA
     Dosage: 44 MCG, UNK
     Route: 042
     Dates: start: 20130323
  2. REBIF [Suspect]
     Indication: MULTIPLE SCLEROSIS
     Dosage: 44 MCG, 3/WEEK
     Route: 058
     Dates: start: 201206
  3. MORPHINE [Suspect]
     Indication: PAIN
     Route: 042
  4. LIPITOR [Concomitant]
     Indication: BLOOD CHOLESTEROL
     Dosage: UNK
     Dates: end: 201303
  5. CALCIUM [Concomitant]
     Indication: OSTEOPOROSIS PROPHYLAXIS
     Dosage: UNK
     Dates: end: 201303
  6. ATENOLOL [Concomitant]
     Indication: HYPERTENSION
  7. DIURETIC                           /00022001/ [Concomitant]
     Indication: HYPERTENSION

REACTIONS (3)
  - Multiple sclerosis relapse [Recovering/Resolving]
  - Overdose [Recovering/Resolving]
  - Respiratory depression [Recovering/Resolving]
